FAERS Safety Report 7032156-9 (Version None)
Quarter: 2010Q4

REPORT INFORMATION
  Report Type: 
  Country: None (occurrence: None)
  Receive Date: 20101007
  Receipt Date: 20100924
  Transmission Date: 20110411
  Serious: Yes (Hospitalization)
  Sender: FDA-Public Use
  Company Number: GB-SANOFI-AVENTIS-2010SA057820

PATIENT
  Age: 80 Year
  Sex: Male
  Weight: 74 kg

DRUGS (10)
  1. ALFUZOSIN HYDROCHLORIDE [Suspect]
     Indication: PROSTATISM
     Route: 048
     Dates: start: 20100204, end: 20100204
  2. CANDESARTAN CILEXETIL [Concomitant]
     Indication: HYPERTENSION
     Route: 048
     Dates: start: 20040301
  3. BECLOMETASONE DIPROPIONATE [Concomitant]
     Indication: ASTHMA
     Dates: start: 20100201
  4. GOSERELIN [Concomitant]
     Indication: PROSTATE CANCER
     Dosage: EVERY 3 MONTHS
  5. PRILOSEC [Concomitant]
     Indication: HIATUS HERNIA
     Dates: start: 20030601
  6. PARACETAMOL [Concomitant]
     Indication: ARTHRITIS
     Dates: start: 19960101
  7. QUININE SULFATE [Concomitant]
     Dates: start: 20080801
  8. SALBUTAMOL [Concomitant]
     Indication: ASTHMA
     Route: 055
     Dates: start: 20100201
  9. TEMAZEPAM [Concomitant]
     Indication: INSOMNIA
     Dates: start: 20051201
  10. WARFARIN SODIUM [Concomitant]
     Indication: DEEP VEIN THROMBOSIS
     Route: 048

REACTIONS (3)
  - ALTERED STATE OF CONSCIOUSNESS [None]
  - BLINDNESS [None]
  - DYSARTHRIA [None]
